FAERS Safety Report 17582887 (Version 1)
Quarter: 2020Q1

REPORT INFORMATION
  Report Type: Other
  Country: US (occurrence: US)
  Receive Date: 20200325
  Receipt Date: 20200325
  Transmission Date: 20200409
  Serious: Yes (Hospitalization)
  Sender: FDA-Public Use
  Company Number: US-VERASTEM-2019-00250

PATIENT

DRUGS (1)
  1. COPIKTRA [Suspect]
     Active Substance: DUVELISIB
     Indication: B-CELL LYMPHOMA
     Dosage: 25 MG, BID
     Route: 048
     Dates: start: 20190716, end: 2019

REACTIONS (5)
  - Hospitalisation [Unknown]
  - Cystitis [Unknown]
  - Pneumonia [Unknown]
  - Vaginal haemorrhage [Unknown]
  - Colitis [Unknown]

NARRATIVE: CASE EVENT DATE: 2019
